FAERS Safety Report 22357144 (Version 1)
Quarter: 2023Q2

REPORT INFORMATION
  Report Type: Report from Study
  Country: US (occurrence: US)
  Receive Date: 20230524
  Receipt Date: 20230524
  Transmission Date: 20230722
  Serious: Yes (Other)
  Sender: FDA-Public Use
  Company Number: US-JAZZ-2016-US-022514

PATIENT
  Sex: Male

DRUGS (28)
  1. XYREM [Suspect]
     Active Substance: SODIUM OXYBATE
     Indication: Narcolepsy
     Dosage: 2.25 G, BID
     Route: 048
     Dates: start: 201404, end: 201404
  2. XYREM [Suspect]
     Active Substance: SODIUM OXYBATE
     Indication: Cataplexy
     Dosage: DOSE ADJUSTMENT
     Route: 048
     Dates: start: 201404, end: 201404
  3. XYREM [Suspect]
     Active Substance: SODIUM OXYBATE
     Indication: Somnolence
     Dosage: 4.5 G, BID
     Route: 048
     Dates: start: 201404
  4. ZETIA [Concomitant]
     Active Substance: EZETIMIBE
  5. RISPERIDONE [Concomitant]
     Active Substance: RISPERIDONE
  6. ATORVASTATIN [Concomitant]
     Active Substance: ATORVASTATIN
  7. NUVIGIL [Concomitant]
     Active Substance: ARMODAFINIL
  8. CALCIUM + VITAMIN D                /01483701/ [Concomitant]
  9. FISH OIL [Concomitant]
     Active Substance: FISH OIL
  10. ASPIRIN [Concomitant]
     Active Substance: ASPIRIN
  11. CYMBALTA [Concomitant]
     Active Substance: DULOXETINE HYDROCHLORIDE
  12. FINASTERIDE [Concomitant]
     Active Substance: FINASTERIDE
  13. METFORMIN [Concomitant]
     Active Substance: METFORMIN HYDROCHLORIDE
  14. TERAZOSIN [Concomitant]
     Active Substance: TERAZOSIN HYDROCHLORIDE
  15. WELLBUTRIN [Concomitant]
     Active Substance: BUPROPION HYDROCHLORIDE
  16. BUSPIRONE [Concomitant]
     Active Substance: BUSPIRONE HYDROCHLORIDE
  17. KLONOPIN [Concomitant]
     Active Substance: CLONAZEPAM
  18. HYDROCHLOROTHIAZIDE\LISINOPRIL [Concomitant]
     Active Substance: HYDROCHLOROTHIAZIDE\LISINOPRIL
  19. AMBIEN [Concomitant]
     Active Substance: ZOLPIDEM TARTRATE
  20. MULTIVITAMINS                      /00116001/ [Concomitant]
  21. OMEPRAZOLE [Concomitant]
     Active Substance: OMEPRAZOLE
  22. TRAZODONE [Concomitant]
     Active Substance: TRAZODONE HYDROCHLORIDE
  23. ABILIFY [Concomitant]
     Active Substance: ARIPIPRAZOLE
  24. DRISDOL [Concomitant]
     Active Substance: ERGOCALCIFEROL
  25. DULCOLAX (BISACODYL) [Concomitant]
     Active Substance: BISACODYL
  26. IBUPROFEN [Concomitant]
     Active Substance: IBUPROFEN
  27. PRAVASTATIN [Concomitant]
     Active Substance: PRAVASTATIN
  28. TRULICITY [Concomitant]
     Active Substance: DULAGLUTIDE
     Indication: Product used for unknown indication
     Dosage: UNK
     Dates: start: 20220218

REACTIONS (4)
  - Neuropathy peripheral [Unknown]
  - Diabetic neuropathy [Not Recovered/Not Resolved]
  - Mental disorder [Unknown]
  - Condition aggravated [Unknown]
